FAERS Safety Report 17355335 (Version 2)
Quarter: 2020Q1

REPORT INFORMATION
  Report Type: Report from Study
  Country: ES (occurrence: ES)
  Receive Date: 20200131
  Receipt Date: 20200318
  Transmission Date: 20200409
  Serious: Yes (Death, Hospitalization, Other)
  Sender: FDA-Public Use
  Company Number: ES-PFIZER INC-2020038515

PATIENT
  Age: 75 Year
  Sex: Female

DRUGS (3)
  1. ATORVASTATIN CALCIUM. [Suspect]
     Active Substance: ATORVASTATIN CALCIUM
     Indication: DYSLIPIDAEMIA
     Dosage: 40 MG, 1X/DAY
     Route: 048
     Dates: start: 20170203, end: 20180209
  2. HYDROCHLOROTHIAZIDE. [Suspect]
     Active Substance: HYDROCHLOROTHIAZIDE
     Indication: HYPERTENSION
     Dosage: 12.5 MG, 1X/DAY
     Route: 048
     Dates: start: 20141016, end: 20180209
  3. ENALAPRIL MALEATE. [Suspect]
     Active Substance: ENALAPRIL MALEATE
     Indication: HYPERTENSION
     Dosage: 20 MG, 1X/DAY
     Route: 048
     Dates: start: 20141016, end: 20180209

REACTIONS (1)
  - Acute kidney injury [Recovered/Resolved]

NARRATIVE: CASE EVENT DATE: 20180209
